FAERS Safety Report 20145287 (Version 3)
Quarter: 2021Q4

REPORT INFORMATION
  Report Type: Report from Study
  Country: BE (occurrence: BE)
  Receive Date: 20211203
  Receipt Date: 20211220
  Transmission Date: 20220304
  Serious: Yes (Death)
  Sender: FDA-Public Use
  Company Number: BE-KARYOPHARM-2021KPT001310

PATIENT

DRUGS (15)
  1. SELINEXOR [Suspect]
     Active Substance: SELINEXOR
     Indication: Plasma cell myeloma
     Dosage: 100 MG, WEEKLY
     Dates: start: 20210813, end: 202110
  2. VELCADE [Concomitant]
     Active Substance: BORTEZOMIB
     Indication: Plasma cell myeloma
     Dosage: 1.3 MG/M2, WEEKLY
     Dates: start: 20210813, end: 202110
  3. DEXAMETHASONE [Concomitant]
     Active Substance: DEXAMETHASONE
     Indication: Plasma cell myeloma
     Dosage: 10 MG, WEEKLY
     Dates: start: 20210813, end: 202110
  4. ACYCLOVIR [Concomitant]
     Active Substance: ACYCLOVIR
     Dosage: 400 MG, BID
  5. SULFAMETHOXAZOLE\TRIMETHOPRIM [Concomitant]
     Active Substance: SULFAMETHOXAZOLE\TRIMETHOPRIM
     Dosage: UNK, 3X/WEEK
  6. FOLIC ACID [Concomitant]
     Active Substance: FOLIC ACID
     Dosage: 4 MG, QD
  7. LYRICA [Concomitant]
     Active Substance: PREGABALIN
     Dosage: 150 MG, BID
  8. DURAGESIC [Concomitant]
     Active Substance: FENTANYL
     Dosage: 75 UG, Q72H
  9. ENOXAPARIN SODIUM [Concomitant]
     Active Substance: ENOXAPARIN SODIUM
     Dosage: 100 MG
  10. PERINDOPRIL ARGININE [Concomitant]
     Active Substance: PERINDOPRIL ARGININE
     Dosage: 5 MG, QD
  11. MOXONIDINE [Concomitant]
     Active Substance: MOXONIDINE
     Dosage: 0.4 MG, QD
  12. SYMBICORT [Concomitant]
     Active Substance: BUDESONIDE\FORMOTEROL FUMARATE DIHYDRATE
     Dosage: UNK, BID
  13. SPIRIVA [Concomitant]
     Active Substance: TIOTROPIUM BROMIDE MONOHYDRATE
     Dosage: UNK, BID
  14. FENOTEROL HYDROBROMIDE [Concomitant]
     Active Substance: FENOTEROL HYDROBROMIDE
     Dosage: UNK, BID
  15. OMEPRAZOLE [Concomitant]
     Active Substance: OMEPRAZOLE
     Dosage: 20 MG, QD

REACTIONS (2)
  - Respiratory failure [Fatal]
  - Infection [Unknown]

NARRATIVE: CASE EVENT DATE: 20210901
